FAERS Safety Report 7022865-X (Version None)
Quarter: 2010Q3

REPORT INFORMATION
  Report Type: 
  Country: None (occurrence: None)
  Receive Date: 20100930
  Receipt Date: 20100928
  Transmission Date: 20110219
  Serious: Yes (Hospitalization, Disabling)
  Sender: FDA-Public Use
  Company Number: US-MERCK-0812USA05213

PATIENT
  Age: 57 Year
  Sex: Female

DRUGS (18)
  1. FOSAMAX [Suspect]
     Indication: OSTEOPOROSIS
     Route: 048
     Dates: start: 20050301, end: 20080204
  2. BACLOFEN [Concomitant]
     Indication: MUSCLE RELAXANT THERAPY
     Route: 065
     Dates: start: 20040813
  3. ALBUTEROL [Concomitant]
     Route: 065
     Dates: start: 20040813
  4. LEVOTHYROXINE SODIUM [Concomitant]
     Indication: THYROID DISORDER
     Route: 065
     Dates: start: 20040813
  5. ZOLOFT [Concomitant]
     Indication: DEPRESSION
     Route: 065
     Dates: start: 20041026
  6. AMITRIPTYLINE HYDROCHLORIDE [Concomitant]
     Indication: SLEEP DISORDER
     Route: 065
     Dates: start: 20041026
  7. CLONAZEPAM [Concomitant]
     Indication: PANIC DISORDER
     Route: 065
     Dates: start: 20041026
  8. CEPHALEXIN [Concomitant]
     Route: 065
     Dates: start: 20050127, end: 20081119
  9. HYDROCODONE [Concomitant]
     Indication: PAIN
     Route: 065
     Dates: start: 20050126
  10. NITROGLYCERIN [Concomitant]
     Indication: ANGINA PECTORIS
     Route: 065
     Dates: start: 20050210
  11. POTASSIUM (UNSPECIFIED) [Concomitant]
     Route: 065
     Dates: start: 20040810
  12. METHOTREXATE [Concomitant]
     Indication: RHEUMATOID ARTHRITIS
     Route: 065
     Dates: start: 20041026, end: 20080101
  13. LEVOTHROID [Concomitant]
     Indication: THYROID DISORDER
     Route: 065
     Dates: start: 20041130
  14. VERAPAMIL [Concomitant]
     Indication: TACHYCARDIA
     Route: 065
     Dates: start: 20050108
  15. KLOR-CON [Concomitant]
     Route: 065
     Dates: start: 20050519
  16. FUROSEMIDE [Concomitant]
     Indication: CARDIAC FAILURE CONGESTIVE
     Route: 065
     Dates: start: 20041130
  17. ISOSORBIDE DINITRATE [Concomitant]
     Indication: ANGINA PECTORIS
     Route: 065
     Dates: start: 20050108
  18. CYMBALTA [Concomitant]
     Indication: DEPRESSION
     Route: 065
     Dates: start: 20050701

REACTIONS (7)
  - ANGINA PECTORIS [None]
  - ANXIETY [None]
  - GINGIVAL INFECTION [None]
  - GINGIVAL PAIN [None]
  - INFECTION [None]
  - OSTEONECROSIS OF JAW [None]
  - TOOTH DISORDER [None]
